FAERS Safety Report 17929359 (Version 1)
Quarter: 2020Q2

REPORT INFORMATION
  Report Type: Other
  Country: CA (occurrence: CA)
  Receive Date: 20200623
  Receipt Date: 20200623
  Transmission Date: 20200714
  Serious: Yes (Other)
  Sender: FDA-Public Use
  Company Number: CA-ACCORD-186132

PATIENT
  Age: 6 Day
  Sex: Female
  Weight: 6 kg

DRUGS (11)
  1. CARBAMAZEPINE. [Suspect]
     Active Substance: CARBAMAZEPINE
     Indication: SEIZURE
     Route: 065
  2. MIDAZOLAM. [Suspect]
     Active Substance: MIDAZOLAM
     Indication: SEIZURE
     Route: 065
  3. OXCARBAZEPINE. [Suspect]
     Active Substance: OXCARBAZEPINE
     Indication: SEIZURE
     Route: 065
  4. VIGABATRIN. [Suspect]
     Active Substance: VIGABATRIN
     Indication: PRODUCT USED FOR UNKNOWN INDICATION
     Route: 065
  5. SIROLIMUS. [Concomitant]
     Active Substance: SIROLIMUS
     Dosage: 1 EVERY 1 DAYS
     Route: 048
  6. LACOSAMIDE. [Suspect]
     Active Substance: LACOSAMIDE
     Indication: SEIZURE
     Route: 065
  7. TOPIRAMATE. [Suspect]
     Active Substance: TOPIRAMATE
     Indication: SEIZURE
     Route: 065
  8. PHENYTOIN. [Suspect]
     Active Substance: PHENYTOIN
     Indication: SEIZURE
     Route: 065
  9. PHENOBARBITAL. [Suspect]
     Active Substance: PHENOBARBITAL
     Indication: SEIZURE
     Route: 065
  10. LEVETIRACETAM. [Suspect]
     Active Substance: LEVETIRACETAM
     Indication: SEIZURE
     Route: 065
  11. SIROLIMUS. [Concomitant]
     Active Substance: SIROLIMUS
     Dosage: 1 EVERY 1 DAYS
     Route: 048

REACTIONS (9)
  - Respiratory rate increased [Recovered/Resolved]
  - White matter lesion [Recovered/Resolved]
  - Disease recurrence [Recovered/Resolved]
  - Flushing [Recovered/Resolved]
  - Heart rate increased [Recovered/Resolved]
  - Magnetic resonance imaging brain abnormal [Recovered/Resolved]
  - Seizure [Recovered/Resolved]
  - Drug ineffective [Unknown]
  - Epilepsy [Recovered/Resolved]
